FAERS Safety Report 22394111 (Version 2)
Quarter: 2024Q4

REPORT INFORMATION
  Report Type: Spontaneous
  Country: CN (occurrence: CN)
  Receive Date: 20230601
  Receipt Date: 20241011
  Transmission Date: 20250114
  Serious: Yes (Hospitalization)
  Sender: JOHNSON AND JOHNSON
  Company Number: CN-JNJFOC-20230561244

PATIENT
  Age: 34 Year
  Sex: Male
  Weight: 71 kg

DRUGS (2)
  1. INVEGA [Suspect]
     Active Substance: PALIPERIDONE
     Indication: Schizophrenia
     Route: 048
     Dates: start: 20220816
  2. INVEGA [Suspect]
     Active Substance: PALIPERIDONE
     Route: 048
     Dates: start: 20221117, end: 20230512

REACTIONS (5)
  - Hospitalisation [Unknown]
  - Hyperprolactinaemia [Not Recovered/Not Resolved]
  - Schizophrenia [Unknown]
  - Therapeutic product effect decreased [Unknown]
  - Treatment noncompliance [Unknown]

NARRATIVE: CASE EVENT DATE: 20220101
